FAERS Safety Report 21148222 (Version 2)
Quarter: 2023Q4

REPORT INFORMATION
  Report Type: Spontaneous
  Country: IT (occurrence: IT)
  Receive Date: 20220729
  Receipt Date: 20231006
  Transmission Date: 20240110
  Serious: Yes (Other)
  Sender: FDA-Public Use
  Company Number: None

PATIENT
  Age: 50 Year
  Sex: Female

DRUGS (1)
  1. ULTRAVIST [Suspect]
     Active Substance: IOPROMIDE
     Indication: Computerised tomogram thorax
     Dosage: 110 MG, ONCE
     Dates: start: 20220709, end: 20220709

REACTIONS (3)
  - Tachypnoea [Recovering/Resolving]
  - Urticaria [Recovering/Resolving]
  - Hypotensive crisis [Recovering/Resolving]

NARRATIVE: CASE EVENT DATE: 20220709
